FAERS Safety Report 4337424-7 (Version None)
Quarter: 2004Q1

REPORT INFORMATION
  Report Type: 
  Country: None (occurrence: None)
  Receive Date: 20040329
  Receipt Date: 20040120
  Transmission Date: 20041129
  Serious: No
  Sender: FDA-Public Use
  Company Number: USA040157093

PATIENT
  Age: 42 Year
  Sex: Male
  Weight: 91 kg

DRUGS (2)
  1. STRATTERA [Suspect]
     Indication: ATTENTION DEFICIT/HYPERACTIVITY DISORDER
     Dosage: 80 MG/DAY
     Dates: start: 20031201
  2. PROZAC [Suspect]
     Dosage: 10 MG/OTHER

REACTIONS (5)
  - DRUG EFFECT DECREASED [None]
  - FEELING ABNORMAL [None]
  - MALE ORGASMIC DISORDER [None]
  - ORGASM ABNORMAL [None]
  - SOMNOLENCE [None]
